FAERS Safety Report 4621209-8 (Version None)
Quarter: 2005Q1

REPORT INFORMATION
  Report Type: 
  Country: None (occurrence: None)
  Receive Date: 20050328
  Receipt Date: 20050314
  Transmission Date: 20050727
  Serious: Yes (Other)
  Sender: FDA-Public Use
  Company Number: 2005044881

PATIENT
  Age: 47 Year
  Sex: Male

DRUGS (3)
  1. CELEBRA [Suspect]
     Indication: SKIN INFECTION
     Dosage: 200 MG (200 MG, 1 IN 1 D), ORAL
     Route: 048
     Dates: start: 20050309, end: 20050314
  2. PENTOSAN POLYSULFATE SODIUM [Concomitant]
  3. ACYCLOVIR [Concomitant]

REACTIONS (6)
  - ANORECTAL DISORDER [None]
  - FEELING ABNORMAL [None]
  - GENITAL DISORDER MALE [None]
  - PENILE DISCHARGE [None]
  - PENILE HAEMORRHAGE [None]
  - URINARY INCONTINENCE [None]
